FAERS Safety Report 8623335 (Version 3)
Quarter: 2012Q4

REPORT INFORMATION
  Report Type: 
  Country: US (occurrence: US)
  Receive Date: 20120620
  Receipt Date: 20120910
  Transmission Date: 20130627
  Serious: Yes (Hospitalization, Other)
  Sender: FDA-Public Use
  Company Number: US-PFIZER INC-2012147189

PATIENT
  Age: 46 Year
  Sex: Female

DRUGS (3)
  1. CHANTIX [Suspect]
     Indication: SMOKING CESSATION THERAPY
     Dosage: 1 mg, UNK
     Dates: start: 200610, end: 200703
  2. CHANTIX [Suspect]
     Dosage: 1 mg, UNK
     Dates: start: 200901, end: 200902
  3. ZANAFLEX [Concomitant]
     Indication: MYALGIA
     Dosage: UNK
     Dates: start: 2002, end: 20120720

REACTIONS (9)
  - Intentional overdose [Recovered/Resolved]
  - Suicide attempt [Recovered/Resolved]
  - Suicidal ideation [Recovered/Resolved]
  - Loss of consciousness [Unknown]
  - Depression [Not Recovered/Not Resolved]
  - Anxiety [Not Recovered/Not Resolved]
  - Emotional distress [Unknown]
  - Aggression [Not Recovered/Not Resolved]
  - Abnormal behaviour [Not Recovered/Not Resolved]
